FAERS Safety Report 16732598 (Version 2)
Quarter: 2019Q3

REPORT INFORMATION
  Report Type: Report from Study
  Country: None (occurrence: US)
  Receive Date: 20190823
  Receipt Date: 20190827
  Transmission Date: 20191005
  Serious: Yes (Hospitalization, Other)
  Sender: FDA-Public Use
  Company Number: US-ABBVIE-19K-163-2896833-00

PATIENT
  Sex: Female

DRUGS (3)
  1. PREDNISONE. [Concomitant]
     Active Substance: PREDNISONE
     Indication: PRODUCT USED FOR UNKNOWN INDICATION
  2. HUMIRA [Suspect]
     Active Substance: ADALIMUMAB
     Indication: RHEUMATOID ARTHRITIS
     Dosage: CITRATE FREE
     Route: 058
  3. HUMIRA [Suspect]
     Active Substance: ADALIMUMAB
     Dosage: CITRATE FREE
     Route: 058
     Dates: start: 201809

REACTIONS (13)
  - Asthenia [Not Recovered/Not Resolved]
  - Rotator cuff syndrome [Unknown]
  - Tachycardia [Not Recovered/Not Resolved]
  - Therapeutic product effect decreased [Unknown]
  - Arrhythmia [Recovered/Resolved]
  - Rheumatoid arthritis [Recovering/Resolving]
  - Dyspnoea [Not Recovered/Not Resolved]
  - Paraesthesia [Not Recovered/Not Resolved]
  - Visual impairment [Not Recovered/Not Resolved]
  - Lower limb fracture [Recovered/Resolved]
  - Hypoaesthesia [Not Recovered/Not Resolved]
  - Decreased appetite [Not Recovered/Not Resolved]
  - Fall [Unknown]

NARRATIVE: CASE EVENT DATE: 2017
